FAERS Safety Report 6576672-2 (Version None)
Quarter: 2010Q1

REPORT INFORMATION
  Report Type: 
  Country: None (occurrence: None)
  Receive Date: 20100210
  Receipt Date: 20100202
  Transmission Date: 20100710
  Serious: Yes (Death, Other)
  Sender: FDA-Public Use
  Company Number: US-SANOFI-AVENTIS-2010SA006321

PATIENT

DRUGS (2)
  1. LOVENOX [Suspect]
     Route: 065
  2. ANTITHROMBOTIC AGENTS [Suspect]
     Route: 065

REACTIONS (1)
  - THROMBOSIS IN DEVICE [None]
